FAERS Safety Report 7107489-8 (Version None)
Quarter: 2010Q4

REPORT INFORMATION
  Report Type: 
  Country: None (occurrence: None)
  Receive Date: 20101018
  Receipt Date: 20091130
  Transmission Date: 20110411
  Serious: Yes (Hospitalization, Other)
  Sender: FDA-Public Use
  Company Number: HQWYE597926AUG04

PATIENT
  Age: 75 Year
  Sex: Female
  Weight: 53.12 kg

DRUGS (15)
  1. PREMARIN [Suspect]
     Indication: HORMONE REPLACEMENT THERAPY
     Dosage: ORAL
     Route: 048
     Dates: start: 19630101, end: 20030101
  2. BIAXIN [Concomitant]
  3. LORAZEPAM [Concomitant]
  4. TETRACYCLINE [Concomitant]
  5. WELLBUTRIN [Concomitant]
  6. COZAAR [Concomitant]
  7. CELEBREX [Concomitant]
  8. FAMOTIDINE [Concomitant]
  9. ALLEGRA [Concomitant]
  10. ASPIRIN [Concomitant]
  11. CEFUROXIME [Concomitant]
  12. TOPROL-XL [Concomitant]
  13. SYNTHROID [Concomitant]
  14. PREVACID [Concomitant]
  15. FUROSEMIDE [Concomitant]

REACTIONS (1)
  - OVARIAN CANCER METASTATIC [None]
